FAERS Safety Report 7019574-X (Version None)
Quarter: 2010Q3

REPORT INFORMATION
  Report Type: 
  Country: None (occurrence: None)
  Receive Date: 20100928
  Receipt Date: 20100928
  Transmission Date: 20110219
  Serious: No
  Sender: FDA-Public Use
  Company Number: None

PATIENT
  Age: 23 Year
  Sex: Female
  Weight: 77.1115 kg

DRUGS (1)
  1. FEMCON FE [Suspect]
     Indication: CONTRACEPTION
     Dosage: ONE PILL ONCE PER DAY PO
     Route: 048
     Dates: start: 20100517

REACTIONS (1)
  - POLYMENORRHOEA [None]
